FAERS Safety Report 5700963-8 (Version None)
Quarter: 2008Q2

REPORT INFORMATION
  Report Type: 
  Country: None (occurrence: None)
  Receive Date: 20080410
  Receipt Date: 20080401
  Transmission Date: 20081010
  Serious: Yes (Hospitalization)
  Sender: FDA-Public Use
  Company Number: FR-WYE-H03522508

PATIENT
  Sex: Male

DRUGS (12)
  1. INIPOMP [Suspect]
     Route: 042
     Dates: start: 20071214, end: 20071216
  2. LOXEN [Suspect]
     Dosage: DAILY DOSE 1 MG (DURATION RECEIVED WAS 24 HOURS)
     Route: 042
     Dates: start: 20071214, end: 20071215
  3. TRANXENE [Suspect]
     Route: 042
     Dates: start: 20071215, end: 20071215
  4. DETENSIEL [Concomitant]
     Route: 048
     Dates: start: 20071214, end: 20071214
  5. OMEPRAZOLE [Concomitant]
     Dosage: UNKNOWN
     Route: 065
  6. VALSARTAN [Concomitant]
     Dosage: UNKNOWN
     Route: 065
  7. HYDROCHLOROTHIAZIDE [Concomitant]
     Dosage: UNKNOWN
     Route: 065
  8. ALLOPURINOL [Concomitant]
     Dosage: UNKNOWN
     Route: 065
  9. ATORVASTATIN [Concomitant]
     Dosage: UNKNOWN
     Route: 065
  10. ACTIVASE [Suspect]
     Indication: THROMBOLYSIS
     Route: 042
     Dates: start: 20071214, end: 20071214
  11. ACTIVASE [Suspect]
     Route: 042
     Dates: start: 20071214, end: 20071214
  12. METFORMIN HCL [Concomitant]
     Dosage: UNKNOWN
     Route: 065

REACTIONS (3)
  - CYANOSIS [None]
  - DERMATITIS BULLOUS [None]
  - STAPHYLOCOCCAL SKIN INFECTION [None]
